FAERS Safety Report 9539385 (Version 2)
Quarter: 2013Q3

REPORT INFORMATION
  Report Type: Spontaneous
  Country: DK (occurrence: DK)
  Receive Date: 20130920
  Receipt Date: 20130925
  Transmission Date: 20140515
  Serious: Yes (Death, Congenital Anomaly)
  Sender: FDA-Public Use
  Company Number: DK-PFIZER INC-2013267492

PATIENT
  Age: 3 Week
  Sex: Male
  Weight: 3.7 kg

DRUGS (2)
  1. FLUCONAZOLE BMM PHARMA [Suspect]
     Indication: FUNGAL INFECTION
     Dosage: 150 MG, UNKNOWN
     Route: 064
     Dates: start: 2012, end: 2012
  2. FLIXONASE [Suspect]
     Indication: SEASONAL ALLERGY
     Dosage: 1SPR PER DAY
     Route: 064

REACTIONS (2)
  - Foetal exposure during pregnancy [Fatal]
  - Coarctation of the aorta [Fatal]
